FAERS Safety Report 24218383 (Version 3)
Quarter: 2024Q4

REPORT INFORMATION
  Report Type: Spontaneous
  Country: FR (occurrence: FR)
  Receive Date: 20240816
  Receipt Date: 20241118
  Transmission Date: 20250114
  Serious: Yes (Other)
  Sender: ALEXION PHARMACEUTICALS
  Company Number: None

PATIENT
  Age: 84 Year
  Weight: 48 kg

DRUGS (6)
  1. IMFINZI [Suspect]
     Active Substance: DURVALUMAB
     Indication: Cholangiocarcinoma
     Dosage: 1500 MILLIGRAM, UNK, FREQUENCY: Q4WK
  2. IMFINZI [Suspect]
     Active Substance: DURVALUMAB
     Dosage: 1500 MILLIGRAM, UNK, FREQUENCY: Q4WK
  3. IMFINZI [Suspect]
     Active Substance: DURVALUMAB
     Dosage: 1500 MILLIGRAM, UNK, FREQUENCY: Q4WK
  4. IMFINZI [Suspect]
     Active Substance: DURVALUMAB
     Dosage: 1500 MILLIGRAM, UNK, FREQUENCY: Q4WK
  5. GEMZAR [Suspect]
     Active Substance: GEMCITABINE HYDROCHLORIDE
     Indication: Cholangiocarcinoma
     Dosage: 1216.74 MILLIGRAM, UNK, FREQUENCY: Q14D
  6. GEMZAR [Suspect]
     Active Substance: GEMCITABINE HYDROCHLORIDE
     Dosage: 1216.74 MILLIGRAM, UNK, FREQUENCY: Q14D

REACTIONS (1)
  - Organising pneumonia [Not Recovered/Not Resolved]
